FAERS Safety Report 4861602-1 (Version None)
Quarter: 2005Q4

REPORT INFORMATION
  Report Type: 
  Country: None (occurrence: None)
  Receive Date: 20051216
  Receipt Date: 20051202
  Transmission Date: 20060501
  Serious: Yes (Hospitalization)
  Sender: FDA-Public Use
  Company Number: CA_051108982

PATIENT
  Age: 8 Year
  Sex: Male

DRUGS (1)
  1. STRATTERA [Suspect]
     Indication: ATTENTION DEFICIT/HYPERACTIVITY DISORDER
     Dosage: 25 MG, ORAL
     Route: 048
     Dates: start: 20050101

REACTIONS (3)
  - ABNORMAL BEHAVIOUR [None]
  - AGGRESSION [None]
  - OPPOSITIONAL DEFIANT DISORDER [None]
